FAERS Safety Report 5040373-2 (Version None)
Quarter: 2006Q2

REPORT INFORMATION
  Report Type: 
  Country: None (occurrence: None)
  Receive Date: 20060630
  Receipt Date: 20060627
  Transmission Date: 20061013
  Serious: Yes (Death)
  Sender: FDA-Public Use
  Company Number: 2006AC01184

PATIENT
  Age: 24046 Day
  Sex: Male
  Weight: 69 kg

DRUGS (10)
  1. SEROQUEL [Suspect]
     Indication: SCHIZOPHRENIA
     Route: 048
     Dates: start: 20050801
  2. SEROQUEL [Suspect]
     Route: 048
     Dates: start: 20060201
  3. SELOKEEN [Suspect]
     Indication: CARDIAC FAILURE
     Dosage: COMMENCED BEFORE APRIL 2006
     Route: 048
  4. ACENOCOUMAROL [Suspect]
     Indication: PROPHYLAXIS
  5. BUMETANIDE [Suspect]
     Indication: CARDIAC FAILURE
  6. PANTOZOL [Concomitant]
     Dosage: STARTED BEFORE APRIL 2006
     Route: 048
  7. LIPITOR [Concomitant]
     Indication: HYPERCHOLESTEROLAEMIA
     Dosage: STARTED BEFORE APRIL 2006
  8. NEWACE [Concomitant]
     Dosage: STARTED BEFORE APRIL 2006
  9. ACETYLCYSTEINE [Concomitant]
     Indication: MUCOUS MEMBRANE DISORDER
     Dosage: STARTED BEFORE APRIL 2006
  10. SPIRONOLACTONE [Concomitant]
     Indication: CARDIAC FAILURE
     Dosage: STARTED BEFORE APRIL 2006

REACTIONS (1)
  - VIRAL INFECTION [None]
